FAERS Safety Report 11150673 (Version 4)
Quarter: 2015Q3

REPORT INFORMATION
  Report Type: Report from Study
  Country: BR (occurrence: BR)
  Receive Date: 20150601
  Receipt Date: 20150729
  Transmission Date: 20151125
  Serious: Yes (Death, Life-Threatening, Hospitalization, Other)
  Sender: FDA-Public Use
  Company Number: BR-ROCHE-1569068

PATIENT
  Age: 74 Year
  Sex: Female
  Weight: 120 kg

DRUGS (15)
  1. XOLAIR [Suspect]
     Active Substance: OMALIZUMAB
     Indication: ASTHMA
     Route: 058
     Dates: start: 201408
  2. SERETIDE [Concomitant]
     Active Substance: FLUTICASONE FUROATE\SALMETEROL XINAFOATE
  3. BROMOPRIDA [Concomitant]
     Route: 065
     Dates: start: 2012
  4. PREDNISONE. [Concomitant]
     Active Substance: PREDNISONE
     Route: 065
     Dates: start: 2012
  5. PREDNISONE. [Concomitant]
     Active Substance: PREDNISONE
     Route: 065
     Dates: start: 2012
  6. BAMIFIX [Concomitant]
     Active Substance: BAMIFYLLINE HYDROCHLORIDE
     Route: 065
     Dates: start: 2012
  7. OXYGEN. [Concomitant]
     Active Substance: OXYGEN
  8. CLONAZEPAM. [Concomitant]
     Active Substance: CLONAZEPAM
     Route: 065
     Dates: start: 2012
  9. XOLAIR [Suspect]
     Active Substance: OMALIZUMAB
     Route: 058
  10. LASIX [Concomitant]
     Active Substance: FUROSEMIDE
     Route: 065
     Dates: start: 2012
  11. ALOPURINOL [Concomitant]
     Active Substance: ALLOPURINOL
     Route: 065
     Dates: start: 2012
  12. XOLAIR [Suspect]
     Active Substance: OMALIZUMAB
     Dosage: 4 AMPOULES PER WEEK
     Route: 058
     Dates: start: 201504, end: 201504
  13. DAFLON [Concomitant]
     Active Substance: DIOSMIN\HESPERIDIN
     Route: 065
     Dates: start: 2012
  14. LOSARTAN. [Concomitant]
     Active Substance: LOSARTAN
     Route: 065
     Dates: start: 2012
  15. SPIRIVA [Concomitant]
     Active Substance: TIOTROPIUM BROMIDE MONOHYDRATE

REACTIONS (6)
  - Drug eruption [Fatal]
  - Hypersensitivity [Recovered/Resolved with Sequelae]
  - Feeling abnormal [Recovered/Resolved with Sequelae]
  - Swelling [Recovered/Resolved with Sequelae]
  - Erysipelas [Recovering/Resolving]
  - Weight increased [Recovered/Resolved with Sequelae]

NARRATIVE: CASE EVENT DATE: 201504
